FAERS Safety Report 23443487 (Version 1)
Quarter: 2024Q1

REPORT INFORMATION
  Report Type: Report from Study
  Country: US (occurrence: US)
  Receive Date: 20240125
  Receipt Date: 20240125
  Transmission Date: 20240410
  Serious: Yes (Hospitalization, Other)
  Sender: FDA-Public Use
  Company Number: US-ABBVIE-5599790

PATIENT
  Age: 72 Year
  Sex: Male

DRUGS (1)
  1. SKYRIZI [Suspect]
     Active Substance: RISANKIZUMAB-RZAA
     Indication: Psoriasis
     Route: 058
     Dates: start: 20220412

REACTIONS (5)
  - Prostate cancer [Unknown]
  - Cardiac pacemaker insertion [Unknown]
  - Vascular graft [Unknown]
  - Extrasystoles [Unknown]
  - Complication associated with device [Unknown]

NARRATIVE: CASE EVENT DATE: 20231101
